FAERS Safety Report 6338854-4 (Version None)
Quarter: 2009Q3

REPORT INFORMATION
  Report Type: 
  Country: None (occurrence: None)
  Receive Date: 20090827
  Receipt Date: 20090724
  Transmission Date: 20100115
  Serious: No
  Sender: FDA-Public Use
  Company Number: 001332

PATIENT

DRUGS (3)
  1. LACOSAMIDE [Suspect]
     Indication: CONVULSION
     Dosage: (FREQUENCY REPORTED AS BID. DOSE, UNIT, ROUTE, AND DATES OF THERAPY NOT REPORTED)
  2. LEVETIRACETAM [Suspect]
     Indication: CONVULSION
  3. PHENYTOIN SODIUM [Concomitant]

REACTIONS (1)
  - RASH MACULO-PAPULAR [None]
